FAERS Safety Report 13117137 (Version 5)
Quarter: 2017Q2

REPORT INFORMATION
  Report Type: Report from Study
  Country: US (occurrence: US)
  Receive Date: 20170116
  Receipt Date: 20170612
  Transmission Date: 20170830
  Serious: Yes (Hospitalization, Other)
  Sender: FDA-Public Use
  Company Number: US-GILEAD-2017-0253264

PATIENT
  Age: 45 Year
  Sex: Female
  Weight: 138.5 kg

DRUGS (19)
  1. UPTRAVI [Suspect]
     Active Substance: SELEXIPAG
     Dosage: 800 UG, BID
     Route: 065
     Dates: start: 20170121
  2. AMBRISENTAN [Suspect]
     Active Substance: AMBRISENTAN
     Indication: PULMONARY HYPERTENSION
     Dosage: 10 MG, QD
     Route: 065
     Dates: start: 20141030
  3. LISINOPRIL. [Concomitant]
     Active Substance: LISINOPRIL
  4. OXYGEN. [Concomitant]
     Active Substance: OXYGEN
  5. LEVOTHROID [Concomitant]
     Active Substance: LEVOTHYROXINE SODIUM
  6. KLOR-CON [Concomitant]
     Active Substance: POTASSIUM CHLORIDE
  7. ADCIRCA [Concomitant]
     Active Substance: TADALAFIL
  8. NEBUSAL [Concomitant]
  9. UPTRAVI [Suspect]
     Active Substance: SELEXIPAG
     Dosage: 1200 UG, BID
     Route: 065
     Dates: start: 20170522, end: 20170529
  10. ELAVIL [Concomitant]
     Active Substance: AMITRIPTYLINE HYDROCHLORIDE
  11. LEXAPRO [Concomitant]
     Active Substance: ESCITALOPRAM OXALATE
  12. UPTRAVI [Suspect]
     Active Substance: SELEXIPAG
     Indication: PRODUCT USED FOR UNKNOWN INDICATION
     Dosage: 1000 UG, BID
     Route: 065
  13. PERCOCET                           /00446701/ [Concomitant]
     Active Substance: ACETAMINOPHEN\OXYCODONE HYDROCHLORIDE\OXYCODONE TEREPHTHALATE
  14. SINGULAIR [Concomitant]
     Active Substance: MONTELUKAST SODIUM
  15. UPTRAVI [Suspect]
     Active Substance: SELEXIPAG
     Dosage: 1200 UG, BID
     Route: 065
  16. VITAMIN D                          /00107901/ [Concomitant]
     Active Substance: ERGOCALCIFEROL
  17. VENTOLIN [Concomitant]
     Active Substance: ALBUTEROL SULFATE
  18. METOPROLOL SUCCINATE. [Concomitant]
     Active Substance: METOPROLOL SUCCINATE
  19. IPRATROPIUM BROMIDE. [Concomitant]
     Active Substance: IPRATROPIUM BROMIDE

REACTIONS (7)
  - Nausea [Unknown]
  - Diarrhoea [Unknown]
  - Hypotension [Unknown]
  - Headache [Recovered/Resolved]
  - Hypoxia [Unknown]
  - Acute respiratory failure [Unknown]
  - Headache [Unknown]

NARRATIVE: CASE EVENT DATE: 20170419
